FAERS Safety Report 4778224-3 (Version None)
Quarter: 2005Q3

REPORT INFORMATION
  Report Type: 
  Country: None (occurrence: None)
  Receive Date: 20050926
  Receipt Date: 20030425
  Transmission Date: 20060218
  Serious: Yes (Other)
  Sender: FDA-Public Use
  Company Number: US-BRISTOL-MYERS SQUIBB COMPANY-12258695

PATIENT
  Age: 40 Year
  Sex: Female

DRUGS (11)
  1. STADOL [Suspect]
     Indication: TRIGEMINAL NEURALGIA
     Route: 045
     Dates: start: 19970901, end: 20000101
  2. STADOL [Suspect]
     Indication: PAIN
     Dates: start: 19980101
  3. LORTAB [Concomitant]
  4. PHENERGAN [Concomitant]
  5. ULTRAM [Concomitant]
  6. NEURONTIN [Concomitant]
  7. TEGRETOL [Concomitant]
  8. IBUPROFEN [Concomitant]
  9. MS CONTIN [Concomitant]
  10. NORVASC [Concomitant]
  11. PERCOCET [Concomitant]

REACTIONS (1)
  - DEPENDENCE [None]
